FAERS Safety Report 24667597 (Version 1)
Quarter: 2024Q4

REPORT INFORMATION
  Report Type: Spontaneous
  Country: US (occurrence: US)
  Receive Date: 20241126
  Receipt Date: 20241126
  Transmission Date: 20250115
  Serious: Yes (Hospitalization)
  Sender: CIPLA
  Company Number: US-CIPLA LTD.-2024US13400

PATIENT

DRUGS (9)
  1. LEVETIRACETAM [Suspect]
     Active Substance: LEVETIRACETAM
     Dosage: UNK
     Route: 064
  2. LORAZEPAM [Suspect]
     Active Substance: LORAZEPAM
     Dosage: UNK
     Route: 064
  3. MAGNESIUM [Suspect]
     Active Substance: MAGNESIUM
     Dosage: UNK
     Route: 064
  4. MIDAZOLAM [Suspect]
     Active Substance: MIDAZOLAM
     Dosage: UNK
     Route: 064
  5. PROPOFOL [Suspect]
     Active Substance: PROPOFOL
     Dosage: UNK (MATERNAL DOSE: 55MCG/KG/MIN, TID)
     Route: 064
  6. FOSPHENYTOIN [Suspect]
     Active Substance: FOSPHENYTOIN
     Dosage: UNK (MATERNAL DOSE: 100MG IV THREE TIMES PER DAY)
     Route: 064
  7. LACOSAMIDE [Suspect]
     Active Substance: LACOSAMIDE
     Dosage: UNK (MATERNAL DOSE: 400MG IV TWICE PER DAY)
     Route: 064
  8. KETAMINE [Suspect]
     Active Substance: KETAMINE
     Dosage: UNK (MATERNAL DOSE: 2MG/KG/H)
     Route: 064
  9. PENTOBARBITAL [Suspect]
     Active Substance: PENTOBARBITAL
     Dosage: UNK (MATERNAL DOSE: 2MG/KG/H)
     Route: 064

REACTIONS (2)
  - Premature baby [Unknown]
  - Foetal exposure during pregnancy [Unknown]
